FAERS Safety Report 8426637-0 (Version None)
Quarter: 2012Q2

REPORT INFORMATION
  Report Type: 
  Country: None (occurrence: None)
  Receive Date: 20120611
  Receipt Date: 20120611
  Transmission Date: 20120825
  Serious: Yes (Death)
  Sender: FDA-Public Use
  Company Number: US-PFIZER INC-2011US-41193

PATIENT
  Age: 57 Year
  Sex: Female

DRUGS (6)
  1. ZOLPIDEM TARTRATE [Suspect]
     Route: 048
  2. ACETAMINOPHEN [Suspect]
     Route: 065
  3. ACETAMINOPHEN [Suspect]
     Route: 048
  4. VERAPAMIL HCL [Suspect]
     Route: 065
  5. VERAPAMIL HCL [Suspect]
     Route: 065
  6. ZOLPIDEM TARTRATE [Suspect]
     Route: 065

REACTIONS (1)
  - COMPLETED SUICIDE [None]
